FAERS Safety Report 7254277-8 (Version None)
Quarter: 2011Q1

REPORT INFORMATION
  Report Type: 
  Country: None (occurrence: None)
  Receive Date: 20110129
  Receipt Date: 20100118
  Transmission Date: 20110831
  Serious: No
  Sender: FDA-Public Use
  Company Number: US-ABBOTT-10P-163-0620168-00

PATIENT
  Sex: Male
  Weight: 69.916 kg

DRUGS (1)
  1. HUMIRA [Suspect]
     Indication: CROHN'S DISEASE
     Dates: start: 20081114

REACTIONS (2)
  - PRODUCTIVE COUGH [None]
  - NASAL CONGESTION [None]
